FAERS Safety Report 4278275-1 (Version None)
Quarter: 2004Q1

REPORT INFORMATION
  Report Type: 
  Country: None (occurrence: None)
  Receive Date: 20040121
  Receipt Date: 20040107
  Transmission Date: 20041129
  Serious: Yes (Hospitalization)
  Sender: FDA-Public Use
  Company Number: JP_040102468

PATIENT
  Age: 2 Month
  Sex: Male

DRUGS (3)
  1. ONCOVIN [Suspect]
     Indication: RHABDOMYOSARCOMA
  2. DACTINOMYCIN [Concomitant]
  3. CYCLOPHOSPHAMIDE [Concomitant]

REACTIONS (6)
  - DRUG HYPERSENSITIVITY [None]
  - EOSINOPHIL COUNT INCREASED [None]
  - HEPATOMEGALY [None]
  - PLATELET COUNT DECREASED [None]
  - RHABDOMYOSARCOMA [None]
  - VENOOCCLUSIVE LIVER DISEASE [None]
